FAERS Safety Report 7150283-2 (Version None)
Quarter: 2010Q4

REPORT INFORMATION
  Report Type: 
  Country: None (occurrence: None)
  Receive Date: 20101123
  Receipt Date: 20101019
  Transmission Date: 20110411
  Serious: No
  Sender: FDA-Public Use
  Company Number: 018444

PATIENT
  Sex: Female
  Weight: 65.8 kg

DRUGS (6)
  1. CIMZIA [Suspect]
     Indication: CROHN'S DISEASE
     Dosage: (400 MG, 3 DOSES EVERY 2 WEEKS, THEN EVERY 28 DAYS FOR  A YEAR SUBCUTANEOUS)
     Route: 058
     Dates: start: 20100823
  2. ZANAFLEX [Concomitant]
  3. LORAZEPAM [Concomitant]
  4. LEVOTHYROXINE [Concomitant]
  5. FERROUS SULFATE [Concomitant]
  6. MESALAMINE [Concomitant]

REACTIONS (5)
  - FEELING ABNORMAL [None]
  - INJECTION SITE PAIN [None]
  - INJECTION SITE SWELLING [None]
  - MUSCLE TIGHTNESS [None]
  - PRURITUS [None]
